FAERS Safety Report 4767734-0 (Version None)
Quarter: 2005Q3

REPORT INFORMATION
  Report Type: 
  Country: None (occurrence: None)
  Receive Date: 20050912
  Receipt Date: 20050829
  Transmission Date: 20060218
  Serious: Yes (Hospitalization)
  Sender: FDA-Public Use
  Company Number: DSA_26938_2005

PATIENT
  Age: 6 Year
  Sex: Male

DRUGS (3)
  1. ENALAPRIL MALEATE [Suspect]
     Indication: CARDIOMYOPATHY
     Dosage: 5 MG QD PO
     Route: 048
     Dates: start: 20050731, end: 20050802
  2. ENALAPRIL MALEATE [Suspect]
     Indication: CARDIOMYOPATHY
     Dosage: 5 MG QD PO
     Route: 048
     Dates: start: 20050810, end: 20050811
  3. LASIX [Concomitant]

REACTIONS (4)
  - ARRHYTHMIA [None]
  - DRUG HYPERSENSITIVITY [None]
  - HYPOTENSION [None]
  - RASH GENERALISED [None]
